FAERS Safety Report 25091930 (Version 1)
Quarter: 2025Q1

REPORT INFORMATION
  Report Type: Spontaneous
  Country: US (occurrence: US)
  Receive Date: 20250318
  Receipt Date: 20250318
  Transmission Date: 20250408
  Serious: Yes (Other)
  Sender: JOHNSON AND JOHNSON
  Company Number: US-VIIV HEALTHCARE-US2025028499

PATIENT
  Age: 34 Year
  Sex: Female

DRUGS (4)
  1. RILPIVIRINE [Suspect]
     Active Substance: RILPIVIRINE
     Indication: HIV infection
     Route: 065
     Dates: start: 20240804
  2. CABENUVA [Suspect]
     Active Substance: CABOTEGRAVIR\RILPIVIRINE
     Indication: HIV infection
     Route: 065
     Dates: start: 20240804
  3. OMEPRAZOLE [Concomitant]
     Active Substance: OMEPRAZOLE
     Indication: Gastrooesophageal reflux disease
     Route: 065
  4. BIKTARVY [Concomitant]
     Active Substance: BICTEGRAVIR SODIUM\EMTRICITABINE\TENOFOVIR ALAFENAMIDE FUMARATE
     Indication: HIV infection
     Route: 065

REACTIONS (4)
  - Weight increased [Not Recovered/Not Resolved]
  - Virologic failure [Not Recovered/Not Resolved]
  - Glucose tolerance impaired [Unknown]
  - Product use in unapproved therapeutic environment [Unknown]

NARRATIVE: CASE EVENT DATE: 20250307
